FAERS Safety Report 4665389-7 (Version None)
Quarter: 2005Q2

REPORT INFORMATION
  Report Type: 
  Country: None (occurrence: None)
  Receive Date: 20050518
  Receipt Date: 20050518
  Transmission Date: 20051028
  Serious: No
  Sender: FDA-Public Use
  Company Number: None

PATIENT
  Sex: Female

DRUGS (4)
  1. NEURONTIN [Suspect]
     Indication: AFFECTIVE DISORDER
     Dosage: 600 MG TWO 9 AM IV Q HS
     Route: 042
     Dates: start: 20041103
  2. NEURONTIN [Suspect]
     Indication: EATING DISORDER
     Dosage: 600 MG TWO 9 AM IV Q HS
     Route: 042
     Dates: start: 20041103
  3. NEURONTIN [Suspect]
     Indication: AFFECTIVE DISORDER
     Dosage: 600 MG TWO 9 AM IV Q HS
     Route: 042
     Dates: start: 20050510
  4. NEURONTIN [Suspect]
     Indication: EATING DISORDER
     Dosage: 600 MG TWO 9 AM IV Q HS
     Route: 042
     Dates: start: 20050510

REACTIONS (3)
  - DRUG EFFECT DECREASED [None]
  - DRUG INTOLERANCE [None]
  - PHARMACEUTICAL PRODUCT COMPLAINT [None]
